FAERS Safety Report 15842963 (Version 1)
Quarter: 2019Q1

REPORT INFORMATION
  Report Type: Spontaneous
  Country: US (occurrence: US)
  Receive Date: 20190118
  Receipt Date: 20190118
  Transmission Date: 20190417
  Serious: Yes (Hospitalization)
  Sender: FDA-Public Use
  Company Number: None

PATIENT
  Age: 63 Year
  Sex: Female
  Weight: 71.1 kg

DRUGS (15)
  1. ANASTRAZOLE 1MG [Concomitant]
  2. BIOTENE DRY MOUTH [Concomitant]
  3. DOCUSATE SODIUM 100MG [Concomitant]
     Active Substance: DOCUSATE SODIUM
  4. ENOXAPARIN 300MG [Concomitant]
  5. POLYETHYLENE GLYCOL 3350. [Concomitant]
     Active Substance: POLYETHYLENE GLYCOL 3350
  6. MULTI-VITAMIN [Concomitant]
     Active Substance: .ALPHA.-TOCOPHEROL ACETATE, DL-\ASCORBIC ACID\CYANOCOBALAMIN\FLUORIDE ION\FOLIC ACID\NIACIN\PYRIDOXINE\RIBOFLAVIN\THIAMINE\VITAMIN A\VITAMIN D
  7. OLANZAPINE 15MG [Concomitant]
     Active Substance: OLANZAPINE
  8. MELATONIN 2.5MG [Concomitant]
  9. FENTANYL 50MCG [Concomitant]
  10. SENNA LAXATIVE [Concomitant]
     Active Substance: SENNOSIDES
  11. IBRANCE [Suspect]
     Active Substance: PALBOCICLIB
     Indication: BREAST CANCER
     Route: 048
  12. PERCOCET [Concomitant]
     Active Substance: ACETAMINOPHEN\OXYCODONE HYDROCHLORIDE
  13. ACETAMINOPHEN 650MG [Concomitant]
  14. ERGOCALCIFEROL 50000 UNITS [Concomitant]
  15. PEPCIDE20MG [Concomitant]

REACTIONS (1)
  - Infection [None]

NARRATIVE: CASE EVENT DATE: 20190103
